FAERS Safety Report 8716292 (Version 2)
Quarter: 2013Q4

REPORT INFORMATION
  Report Type: Spontaneous
  Country: GB (occurrence: GB)
  Receive Date: 20120810
  Receipt Date: 20131031
  Transmission Date: 20140711
  Serious: Yes (Other)
  Sender: FDA-Public Use
  Company Number: GB-009507513-1208GBR001986

PATIENT
  Age: 54 Year
  Sex: Female
  Weight: 90 kg

DRUGS (19)
  1. ZOCOR [Suspect]
     Dosage: UNK
     Dates: start: 20120703
  2. CALCICHEW D3 [Concomitant]
     Dosage: UNK
     Dates: start: 20120416
  3. ACETAMINOPHEN (+) CODEINE PHOSPHATE [Concomitant]
     Dosage: UNK
     Dates: start: 20120531
  4. ESTROGENS, CONJUGATED [Concomitant]
     Dosage: UNK
     Dates: start: 20120723
  5. ESTROGENS, CONJUGATED [Concomitant]
     Dosage: UNK
     Dates: start: 20120531
  6. FUCIDIN (FUSIDIC ACID) [Concomitant]
     Dosage: UNK
     Dates: start: 20120723
  7. FUROSEMIDE [Concomitant]
     Dosage: UNK
     Dates: start: 20120416
  8. LACTULOSE [Concomitant]
     Dosage: UNK
     Dates: start: 20120416, end: 20120705
  9. LANSOPRAZOLE [Concomitant]
     Dosage: UNK
     Dates: start: 20120706
  10. LEVOTHYROXINE SODIUM [Concomitant]
     Dosage: UNK
     Dates: start: 20120416
  11. MEBEVERINE HYDROCHLORIDE [Concomitant]
     Dosage: UNK
     Dates: start: 20120416
  12. NAPROXEN [Concomitant]
     Dosage: UNK
     Dates: start: 20120413, end: 20120511
  13. OMEPRAZOLE [Concomitant]
     Dosage: UNK
     Dates: start: 20120416, end: 20120705
  14. ACETAMINOPHEN [Concomitant]
     Dosage: UNK
     Dates: start: 20120416, end: 20120612
  15. PREDNISOLONE [Concomitant]
     Dosage: UNK
     Dates: start: 20120423, end: 20120503
  16. ROSUVASTATIN CALCIUM [Concomitant]
     Dosage: UNK
     Dates: start: 20120416
  17. TRAMADOL HYDROCHLORIDE [Concomitant]
     Dosage: UNK
     Dates: start: 20120703
  18. UREA [Concomitant]
     Dosage: UNK
     Dates: start: 20120416
  19. STERIMAR [Concomitant]
     Dosage: UNK
     Dates: start: 20120531

REACTIONS (4)
  - Abdominal pain [Unknown]
  - Change of bowel habit [Recovering/Resolving]
  - Myalgia [Recovering/Resolving]
  - Sleep disorder [Recovering/Resolving]
